FAERS Safety Report 6287486-5 (Version None)
Quarter: 2009Q3

REPORT INFORMATION
  Report Type: 
  Country: None (occurrence: None)
  Receive Date: 20090727
  Receipt Date: 20090714
  Transmission Date: 20100115
  Serious: Yes (Other)
  Sender: FDA-Public Use
  Company Number: CERZ-1000734

PATIENT
  Age: 51 Year
  Sex: Male
  Weight: 82.1 kg

DRUGS (12)
  1. CEREZYME [Suspect]
     Indication: GAUCHER'S DISEASE
     Dosage: 6400 U, Q2W,
     Dates: start: 19980326
  2. BACTRIM [Concomitant]
  3. CELLCEPT [Concomitant]
  4. CLONIDINE [Concomitant]
  5. COLCHICINE (COLCHICINE) [Concomitant]
  6. DIOVAN [Concomitant]
  7. LOPRESSOR [Concomitant]
  8. NEORAL [Concomitant]
  9. PREDNISONE TAB [Concomitant]
  10. PROVENTIL HFA (SALBUTAMOL) [Concomitant]
  11. SIMVASTATIN [Concomitant]
  12. SYNTHROID [Concomitant]

REACTIONS (2)
  - GOUT [None]
  - HEPATOSPLENOMEGALY [None]
